FAERS Safety Report 10683118 (Version 1)
Quarter: 2014Q4

REPORT INFORMATION
  Report Type: Spontaneous
  Country: US (occurrence: None)
  Receive Date: 20141217
  Receipt Date: 20141217
  Transmission Date: 20150529
  Serious: Yes (Hospitalization)
  Sender: FDA-Public Use
  Company Number: TPA2009A00943

PATIENT
  Age: 57 Year
  Sex: Male
  Weight: 99.79 kg

DRUGS (1)
  1. KAPIDEX [Suspect]
     Active Substance: DEXLANSOPRAZOLE
     Indication: GASTROOESOPHAGEAL REFLUX DISEASE
     Route: 048
     Dates: start: 200903

REACTIONS (9)
  - Nasopharyngitis [None]
  - Flatulence [None]
  - Dyspnoea [None]
  - Gastritis [None]
  - Chest pain [None]
  - Gingival abscess [None]
  - Sinus congestion [None]
  - Dyspepsia [None]
  - Bowel movement irregularity [None]

NARRATIVE: CASE EVENT DATE: 200904
